FAERS Safety Report 15449420 (Version 2)
Quarter: 2018Q4

REPORT INFORMATION
  Report Type: Spontaneous
  Country: NL (occurrence: NL)
  Receive Date: 20181001
  Receipt Date: 20181003
  Transmission Date: 20190204
  Serious: Yes (Hospitalization, Other)
  Sender: FDA-Public Use
  Company Number: NL-TEVA-2018-NL-959183

PATIENT
  Sex: Female

DRUGS (1)
  1. DILTIAZEM HCL TEVA RETARD TABLET MGA 90MG [Suspect]
     Active Substance: DILTIAZEM HYDROCHLORIDE
     Route: 065

REACTIONS (3)
  - Chest pain [Unknown]
  - Product coating issue [Unknown]
  - Chest discomfort [Unknown]
